FAERS Safety Report 17923517 (Version 1)
Quarter: 2020Q2

REPORT INFORMATION
  Report Type: Spontaneous
  Country: US (occurrence: US)
  Receive Date: 20200622
  Receipt Date: 20200622
  Transmission Date: 20200714
  Serious: Yes (Hospitalization)
  Sender: FDA-Public Use
  Company Number: None

PATIENT
  Age: 71 Year
  Sex: Male

DRUGS (12)
  1. REPATHA [Suspect]
     Active Substance: EVOLOCUMAB
     Indication: CARDIAC DISORDER
     Route: 058
     Dates: start: 201802
  2. AZITHROMYCIN ANHYDROUS. [Concomitant]
     Active Substance: AZITHROMYCIN ANHYDROUS
  3. METHYLPRED [Concomitant]
     Active Substance: METHYLPREDNISOLONE
  4. BENZONATATE. [Concomitant]
     Active Substance: BENZONATATE
  5. ALBUTEROL. [Concomitant]
     Active Substance: ALBUTEROL
  6. DICLOFENAC [Concomitant]
     Active Substance: DICLOFENAC
  7. LEVOFLOXACIN. [Concomitant]
     Active Substance: LEVOFLOXACIN
  8. MELOXICAM. [Concomitant]
     Active Substance: MELOXICAM
  9. PREDNISONE. [Concomitant]
     Active Substance: PREDNISONE
  10. CEPHALEXIN. [Concomitant]
     Active Substance: CEPHALEXIN
  11. NITROGLYCER [Concomitant]
  12. COLLAGENASE SANTYL [Concomitant]
     Active Substance: COLLAGENASE CLOSTRIDIUM HISTOLYTICUM

REACTIONS (2)
  - Dependence on oxygen therapy [None]
  - COVID-19 [None]

NARRATIVE: CASE EVENT DATE: 20200605
